FAERS Safety Report 4958689-4 (Version None)
Quarter: 2006Q1

REPORT INFORMATION
  Report Type: 
  Country: None (occurrence: None)
  Receive Date: 20060330
  Receipt Date: 20020625
  Transmission Date: 20060701
  Serious: Yes (Life-Threatening, Hospitalization)
  Sender: FDA-Public Use
  Company Number: ES-MERCK-0603USA04555

PATIENT
  Age: 55 Year
  Sex: Female

DRUGS (4)
  1. MODURETIC 5-50 [Suspect]
     Indication: ESSENTIAL HYPERTENSION
     Route: 048
     Dates: start: 20010905, end: 20011114
  2. ZYPREXA [Suspect]
     Indication: SCHIZOPHRENIFORM DISORDER
     Route: 048
     Dates: end: 20011114
  3. MODECATE [Suspect]
     Indication: SCHIZOPHRENIFORM DISORDER
     Route: 030
  4. TRANXILIUM [Concomitant]
     Route: 048

REACTIONS (5)
  - ASTHENIA [None]
  - CENTRAL PONTINE MYELINOLYSIS [None]
  - COMA [None]
  - HYPONATRAEMIA [None]
  - VOMITING [None]
